FAERS Safety Report 10067845 (Version 2)
Quarter: 2014Q2

REPORT INFORMATION
  Report Type: Report from Study
  Country: JP (occurrence: JP)
  Receive Date: 20140409
  Receipt Date: 20140421
  Transmission Date: 20141212
  Serious: Yes (Hospitalization)
  Sender: FDA-Public Use
  Company Number: JP-MPIJNJ-2014JNJ001228

PATIENT
  Sex: 0

DRUGS (7)
  1. VELCADE [Suspect]
     Indication: PLASMA CELL MYELOMA
     Dosage: 2.1 MG/M2, UNK
     Route: 058
     Dates: start: 20140314
  2. LENADEX [Concomitant]
     Indication: PLASMA CELL MYELOMA
     Dosage: 20 MG, UNK
     Route: 048
     Dates: start: 20140314
  3. CEFZON [Concomitant]
     Indication: TOOTH EXTRACTION
     Dosage: 300 MG, UNK
     Route: 048
     Dates: start: 20140312, end: 20140316
  4. GASTER                             /00706001/ [Concomitant]
     Indication: PROPHYLAXIS
     Dosage: 20 MG, UNK
     Route: 048
     Dates: start: 20140314
  5. PURSENNID                          /00571902/ [Concomitant]
     Indication: CONSTIPATION
     Dosage: 24 MG, UNK
     Route: 048
     Dates: start: 20140316
  6. MAGLAX [Concomitant]
     Indication: CONSTIPATION
     Dosage: 1980 MG, UNK
     Route: 048
     Dates: start: 20140318
  7. CRAVIT [Concomitant]
     Indication: COLITIS
     Dosage: 500 MG, UNK
     Route: 048
     Dates: start: 20140326

REACTIONS (1)
  - Amoebic colitis [Recovered/Resolved]
